FAERS Safety Report 12994448 (Version 2)
Quarter: 2016Q4

REPORT INFORMATION
  Report Type: Spontaneous
  Country: BR (occurrence: BR)
  Receive Date: 20161202
  Receipt Date: 20161230
  Transmission Date: 20170207
  Serious: Yes (Hospitalization, Other)
  Sender: FDA-Public Use
  Company Number: BR-TEVA-715568ROM

PATIENT
  Age: 52 Year
  Sex: Male

DRUGS (4)
  1. CLOPIDOGREL [Suspect]
     Active Substance: CLOPIDOGREL BISULFATE
     Indication: THROMBOSIS
     Dosage: PATIENT HAD TAKEN 300MG OF CLOPIDOGREL BEFORE THE ANGIOPLASTY
     Dates: start: 20161103
  2. AAS [Suspect]
     Active Substance: ASPIRIN
  3. ENOXAPARIN [Suspect]
     Active Substance: ENOXAPARIN
     Route: 042
  4. TENECTEPLASE [Suspect]
     Active Substance: TENECTEPLASE

REACTIONS (10)
  - Aspiration [Recovered/Resolved]
  - Vascular stent thrombosis [Recovered/Resolved]
  - Electrocardiogram Q wave abnormal [Recovered/Resolved with Sequelae]
  - Ventricular tachycardia [Recovered/Resolved]
  - Pyrexia [Recovered/Resolved]
  - Nausea [Recovered/Resolved]
  - Cardio-respiratory arrest [Recovered/Resolved]
  - Obstructive airways disorder [Recovered/Resolved]
  - Vomiting [Recovered/Resolved]
  - Ventricular fibrillation [Recovered/Resolved]

NARRATIVE: CASE EVENT DATE: 20161103
